FAERS Safety Report 22378559 (Version 1)
Quarter: 2023Q2

REPORT INFORMATION
  Report Type: Spontaneous
  Country: US (occurrence: US)
  Receive Date: 20230529
  Receipt Date: 20230529
  Transmission Date: 20230721
  Serious: No
  Sender: FDA-Public Use
  Company Number: US-INCYTE CORPORATION-2023IN005173

PATIENT

DRUGS (1)
  1. JAKAFI [Suspect]
     Active Substance: RUXOLITINIB
     Indication: Myelofibrosis
     Dosage: 10 UNK, BID, TAKE WITH OR WITHOUT FOOD
     Route: 048
     Dates: start: 20190629

REACTIONS (2)
  - Drug level increased [Not Recovered/Not Resolved]
  - Rash [Not Recovered/Not Resolved]
